FAERS Safety Report 12743223 (Version 2)
Quarter: 2016Q4

REPORT INFORMATION
  Report Type: Report from Study
  Country: US (occurrence: US)
  Receive Date: 20160914
  Receipt Date: 20161206
  Transmission Date: 20170207
  Serious: Yes (Other)
  Sender: FDA-Public Use
  Company Number: US-JNJFOC-20160912203

PATIENT
  Age: 64 Year
  Sex: Female

DRUGS (3)
  1. IMBRUVICA [Suspect]
     Active Substance: IBRUTINIB
     Indication: CHRONIC LYMPHOCYTIC LEUKAEMIA
     Route: 048
     Dates: start: 20160618, end: 201608
  2. SYNTHROID [Concomitant]
     Active Substance: LEVOTHYROXINE SODIUM
  3. ACYCLOVIR. [Concomitant]
     Active Substance: ACYCLOVIR

REACTIONS (1)
  - Subdural haematoma [Recovered/Resolved]

NARRATIVE: CASE EVENT DATE: 20160811
